FAERS Safety Report 16530713 (Version 1)
Quarter: 2019Q3

REPORT INFORMATION
  Report Type: Spontaneous
  Country: SE (occurrence: SE)
  Receive Date: 20190704
  Receipt Date: 20190704
  Transmission Date: 20191004
  Serious: Yes (Other)
  Sender: FDA-Public Use
  Company Number: SE-TEVA-2019-SE-1072693

PATIENT
  Age: 72 Year
  Sex: Female

DRUGS (1)
  1. OXALIPLATIN. [Suspect]
     Active Substance: OXALIPLATIN
     Indication: RECTAL CANCER
     Dosage: STRENGTH:  ^188.24 MG ^ ?DOSAGE:  ^80% ^
     Route: 042

REACTIONS (3)
  - Dizziness [Unknown]
  - Muscle spasms [Unknown]
  - Dyspnoea [Unknown]

NARRATIVE: CASE EVENT DATE: 20190528
